FAERS Safety Report 10337470 (Version 1)
Quarter: 2014Q3

REPORT INFORMATION
  Report Type: Spontaneous
  Country: US (occurrence: US)
  Receive Date: 20140724
  Receipt Date: 20140724
  Transmission Date: 20150326
  Serious: No
  Sender: FDA-Public Use
  Company Number: US-B.I. PHARMACEUTICALS,INC./RIDGEFIELD-2014-BI-33029BP

PATIENT
  Age: 66 Year
  Sex: Female
  Weight: 89 kg

DRUGS (17)
  1. TRAMADOL [Concomitant]
     Active Substance: TRAMADOL
     Indication: BACK PAIN
     Route: 048
     Dates: start: 2004
  2. PRADAXA [Suspect]
     Active Substance: DABIGATRAN ETEXILATE MESYLATE
     Indication: ATRIAL FIBRILLATION
     Dosage: 300 MG
     Route: 048
     Dates: start: 201211
  3. AZELASTINE [Concomitant]
     Active Substance: AZELASTINE
     Indication: SEASONAL ALLERGY
     Dosage: FORMULATION: NASAL SPRAY
     Route: 045
     Dates: start: 2009
  4. LOPRESSOR [Concomitant]
     Active Substance: METOPROLOL TARTRATE
     Indication: ATRIAL FIBRILLATION
     Dosage: 200 MG
     Route: 048
     Dates: start: 2012
  5. XANAX [Concomitant]
     Active Substance: ALPRAZOLAM
     Indication: ANXIETY
     Dosage: 1 MG
     Route: 048
     Dates: start: 1999
  6. FENTANYL. [Concomitant]
     Active Substance: FENTANYL
     Indication: SPINAL COLUMN STENOSIS
     Dosage: FORMULATION: PATCH
     Route: 061
     Dates: start: 2008
  7. POTASSIUM CHLORIDE. [Concomitant]
     Active Substance: POTASSIUM CHLORIDE
     Indication: BLOOD POTASSIUM DECREASED
     Dosage: 20 MEQ
     Route: 048
     Dates: start: 2010
  8. NORVASC [Concomitant]
     Active Substance: AMLODIPINE BESYLATE
     Indication: HYPERTENSION
     Dosage: 5 MG
     Route: 048
     Dates: start: 2010
  9. PRED FORTE [Concomitant]
     Active Substance: PREDNISOLONE ACETATE
     Indication: MACULAR HOLE
     Route: 050
  10. KEFLEX [Concomitant]
     Active Substance: CEPHALEXIN
     Indication: HIP ARTHROPLASTY
     Route: 050
     Dates: start: 2011
  11. LASIX [Concomitant]
     Active Substance: FUROSEMIDE
     Indication: HYPERTENSION
     Dosage: 40 MG
     Route: 048
     Dates: start: 2010
  12. ALDACTONE [Concomitant]
     Active Substance: SPIRONOLACTONE
     Indication: FLUID RETENTION
     Dosage: 50 MG
     Route: 048
     Dates: start: 2013
  13. KETOROLAC [Concomitant]
     Active Substance: KETOROLAC\KETOROLAC TROMETHAMINE
     Indication: MACULAR HOLE
     Route: 050
  14. RANITIDINE [Concomitant]
     Active Substance: RANITIDINE\RANITIDINE HYDROCHLORIDE
     Indication: GASTROOESOPHAGEAL REFLUX DISEASE
     Route: 048
     Dates: start: 2013
  15. LISINOPRIL. [Concomitant]
     Active Substance: LISINOPRIL
     Indication: DIASTOLIC DYSFUNCTION
     Dosage: 5 MG
     Route: 048
     Dates: start: 2013
  16. BETAMETHASONE [Concomitant]
     Active Substance: BETAMETHASONE
     Indication: STAPHYLOCOCCAL INFECTION
     Route: 061
     Dates: start: 2011
  17. MUPIROCIN. [Concomitant]
     Active Substance: MUPIROCIN
     Indication: STAPHYLOCOCCAL INFECTION
     Dosage: STRENGTH: 2 %
     Route: 061
     Dates: start: 2011

REACTIONS (5)
  - Fall [Recovered/Resolved]
  - Joint injury [Recovered/Resolved]
  - Neck pain [Recovered/Resolved]
  - Head injury [Recovered/Resolved]
  - Limb injury [Recovered/Resolved]

NARRATIVE: CASE EVENT DATE: 2014
